FAERS Safety Report 20963166 (Version 1)
Quarter: 2022Q2

REPORT INFORMATION
  Report Type: Report from Study
  Country: CA (occurrence: CA)
  Receive Date: 20220615
  Receipt Date: 20220615
  Transmission Date: 20220720
  Serious: Yes (Other)
  Sender: FDA-Public Use
  Company Number: CA-JNJFOC-20220613473

PATIENT
  Age: 46 Year
  Sex: Female

DRUGS (1)
  1. REMICADE [Suspect]
     Active Substance: INFLIXIMAB
     Indication: Crohn^s disease
     Route: 042

REACTIONS (10)
  - Exploratory operation [Unknown]
  - Vomiting [Unknown]
  - Hypersomnia [Unknown]
  - Hypersensitivity [Unknown]
  - Infusion related reaction [Unknown]
  - Swelling [Unknown]
  - Dysphagia [Unknown]
  - Feeling abnormal [Unknown]
  - Weight decreased [Unknown]
  - Aphonia [Recovering/Resolving]

NARRATIVE: CASE EVENT DATE: 20220601
